FAERS Safety Report 8012278-6 (Version None)
Quarter: 2011Q4

REPORT INFORMATION
  Report Type: 
  Country: None (occurrence: None)
  Receive Date: 20111228
  Receipt Date: 20111219
  Transmission Date: 20120403
  Serious: Yes (Disabling)
  Sender: FDA-Public Use
  Company Number: DE-ASTRAZENECA-2011SE76562

PATIENT
  Age: 40 Year
  Sex: Female

DRUGS (3)
  1. LORAZEPAM [Suspect]
     Indication: PSYCHOTIC DISORDER
     Route: 065
  2. CITALOPRAM HYDROBROMIDE [Suspect]
     Indication: PSYCHOTIC DISORDER
     Route: 065
     Dates: start: 20110115, end: 20110330
  3. SEROQUEL [Suspect]
     Indication: PSYCHOTIC DISORDER
     Route: 048

REACTIONS (1)
  - EMOTIONAL POVERTY [None]
